FAERS Safety Report 17638052 (Version 1)
Quarter: 2020Q2

REPORT INFORMATION
  Report Type: Spontaneous
  Country: US (occurrence: US)
  Receive Date: 20200406
  Receipt Date: 20200406
  Transmission Date: 20200713
  Serious: No
  Sender: FDA-Public Use
  Company Number: None

PATIENT
  Age: 88 Year
  Sex: Female
  Weight: 90.72 kg

DRUGS (6)
  1. CIPROFLOXACIN. [Suspect]
     Active Substance: CIPROFLOXACIN
     Indication: URINARY TRACT INFECTION
     Dates: start: 202001
  2. OCUVITE [Concomitant]
     Active Substance: VITAMINS
  3. ONE-A-DAY NOS [Concomitant]
     Active Substance: MINERALS\VITAMINS
  4. VITAMIN B12 [Concomitant]
     Active Substance: CYANOCOBALAMIN
  5. SULFAMETHOXAZOLE/TRIMETHOPRIM [Suspect]
     Active Substance: SULFAMETHOXAZOLE\TRIMETHOPRIM
  6. E [Concomitant]

REACTIONS (7)
  - Paraesthesia [None]
  - Crying [None]
  - Nervousness [None]
  - Muscle spasms [None]
  - Balance disorder [None]
  - Tremor [None]
  - Arthralgia [None]

NARRATIVE: CASE EVENT DATE: 20191230
